FAERS Safety Report 15859834 (Version 2)
Quarter: 2019Q3

REPORT INFORMATION
  Report Type: Spontaneous
  Country: AT (occurrence: AT)
  Receive Date: 20190123
  Receipt Date: 20190829
  Transmission Date: 20191004
  Serious: Yes (Death)
  Sender: FDA-Public Use
  Company Number: AT-MYLANLABS-2019M1005513

PATIENT
  Age: 73 Year
  Sex: Female

DRUGS (25)
  1. CYCLOPHOSPHAMIDE. [Suspect]
     Active Substance: CYCLOPHOSPHAMIDE
     Indication: LEUKAEMIC LYMPHOMA
  2. RITUXIMAB. [Suspect]
     Active Substance: RITUXIMAB
     Indication: PRIMARY MYELOFIBROSIS
  3. FEDRATINIB [Suspect]
     Active Substance: FEDRATINIB
     Indication: LEUKAEMIC LYMPHOMA
  4. PREDNISONE. [Suspect]
     Active Substance: PREDNISONE
     Indication: SECOND PRIMARY MALIGNANCY
  5. RITUXIMAB. [Suspect]
     Active Substance: RITUXIMAB
     Indication: DIFFUSE LARGE B-CELL LYMPHOMA
     Dosage: UNK
     Route: 065
  6. PREDNISONE. [Suspect]
     Active Substance: PREDNISONE
     Indication: RECURRENT CANCER
  7. DOXORUBICIN [Suspect]
     Active Substance: DOXORUBICIN
     Indication: RECURRENT CANCER
  8. CYCLOPHOSPHAMIDE. [Suspect]
     Active Substance: CYCLOPHOSPHAMIDE
     Indication: SECOND PRIMARY MALIGNANCY
     Dosage: UNK
  9. VINCRISTINE [Suspect]
     Active Substance: VINCRISTINE
     Indication: DIFFUSE LARGE B-CELL LYMPHOMA
  10. RUXOLITINIB [Suspect]
     Active Substance: RUXOLITINIB
     Indication: PRIMARY MYELOFIBROSIS
     Dosage: UNK
     Route: 065
  11. PREDNISONE. [Suspect]
     Active Substance: PREDNISONE
     Indication: DIFFUSE LARGE B-CELL LYMPHOMA
     Dosage: UNK
     Route: 065
  12. DOXORUBICIN [Suspect]
     Active Substance: DOXORUBICIN
     Indication: SECOND PRIMARY MALIGNANCY
     Dosage: UNK
  13. DOXORUBICIN [Suspect]
     Active Substance: DOXORUBICIN
     Indication: DIFFUSE LARGE B-CELL LYMPHOMA
  14. DOXORUBICIN [Suspect]
     Active Substance: DOXORUBICIN
     Indication: LEUKAEMIC LYMPHOMA
  15. RITUXIMAB. [Suspect]
     Active Substance: RITUXIMAB
     Indication: LEUKAEMIC LYMPHOMA
  16. CYCLOPHOSPHAMIDE. [Suspect]
     Active Substance: CYCLOPHOSPHAMIDE
     Indication: DIFFUSE LARGE B-CELL LYMPHOMA
  17. CYCLOPHOSPHAMIDE. [Suspect]
     Active Substance: CYCLOPHOSPHAMIDE
     Indication: RECURRENT CANCER
  18. RITUXIMAB. [Suspect]
     Active Substance: RITUXIMAB
     Indication: RECURRENT CANCER
  19. VINCRISTINE [Suspect]
     Active Substance: VINCRISTINE
     Indication: SECOND PRIMARY MALIGNANCY
     Dosage: UNK
  20. FEDRATINIB [Suspect]
     Active Substance: FEDRATINIB
     Indication: PRIMARY MYELOFIBROSIS
     Dosage: UNK
     Route: 065
  21. VINCRISTINE [Suspect]
     Active Substance: VINCRISTINE
     Indication: LEUKAEMIC LYMPHOMA
  22. PREDNISONE. [Suspect]
     Active Substance: PREDNISONE
     Indication: LEUKAEMIC LYMPHOMA
  23. RITUXIMAB. [Suspect]
     Active Substance: RITUXIMAB
     Indication: SECOND PRIMARY MALIGNANCY
  24. VINCRISTINE [Suspect]
     Active Substance: VINCRISTINE
     Indication: RECURRENT CANCER
  25. FEDRATINIB [Suspect]
     Active Substance: FEDRATINIB
     Indication: RECURRENT CANCER

REACTIONS (3)
  - Leukaemic lymphoma [Fatal]
  - Second primary malignancy [Fatal]
  - Diffuse large B-cell lymphoma [Fatal]
